FAERS Safety Report 24088780 (Version 3)
Quarter: 2024Q3

REPORT INFORMATION
  Report Type: Spontaneous
  Country: US (occurrence: US)
  Receive Date: 20240715
  Receipt Date: 20240927
  Transmission Date: 20241016
  Serious: Yes (Other)
  Sender: BRISTOL MYERS SQUIBB
  Company Number: US-BRISTOL-MYERS SQUIBB COMPANY-2024-111086

PATIENT
  Age: 50 Year
  Sex: Male

DRUGS (4)
  1. SPRYCEL [Suspect]
     Active Substance: DASATINIB
     Indication: Chronic myeloid leukaemia
     Dosage: FREQUENCY-DAILY
     Route: 048
     Dates: start: 202406
  2. SPRYCEL [Suspect]
     Active Substance: DASATINIB
     Indication: Bone neoplasm
     Dosage: FREQUENCY: 1 TIME A DAY
     Route: 048
     Dates: start: 202406
  3. SPRYCEL [Suspect]
     Active Substance: DASATINIB
     Indication: Soft tissue neoplasm
  4. SPRYCEL [Suspect]
     Active Substance: DASATINIB
     Indication: Neoplasm skin

REACTIONS (5)
  - Headache [Not Recovered/Not Resolved]
  - Back pain [Not Recovered/Not Resolved]
  - Ear haemorrhage [Unknown]
  - Eye haemorrhage [Unknown]
  - Dyspepsia [Unknown]

NARRATIVE: CASE EVENT DATE: 20240601
